FAERS Safety Report 6417987-8 (Version None)
Quarter: 2009Q4

REPORT INFORMATION
  Report Type: 
  Country: None (occurrence: None)
  Receive Date: 20091028
  Receipt Date: 20091015
  Transmission Date: 20100525
  Serious: Yes (Hospitalization, Other)
  Sender: FDA-Public Use
  Company Number: TT-PFIZER INC-2009268096

PATIENT

DRUGS (10)
  1. SERTRALINE HCL [Suspect]
     Indication: BIPOLAR II DISORDER
     Dosage: UNK
  2. PAROXETINE [Suspect]
     Indication: BIPOLAR II DISORDER
     Dosage: UNK
  3. PRAMIPEXOLE [Suspect]
     Indication: BIPOLAR II DISORDER
     Dosage: UNK
  4. LITHIUM CARBONATE [Suspect]
     Indication: BIPOLAR II DISORDER
     Dosage: UNK
  5. LAMOTRIGINE [Suspect]
     Indication: BIPOLAR II DISORDER
     Dosage: UNK
  6. CLOMIPRAMINE [Suspect]
     Indication: BIPOLAR II DISORDER
     Dosage: UNK
  7. QUETIAPINE [Suspect]
     Indication: BIPOLAR II DISORDER
     Dosage: UNK
  8. VENLAFAXINE [Suspect]
     Indication: BIPOLAR II DISORDER
     Dosage: 225-300 MG/DAY
  9. AMITRIPTYLINE [Suspect]
     Indication: BIPOLAR II DISORDER
     Dosage: UNK
  10. VALPROATE SODIUM [Suspect]
     Indication: BIPOLAR II DISORDER
     Dosage: UNK

REACTIONS (7)
  - DEPRESSION [None]
  - DRUG INEFFECTIVE [None]
  - ENERGY INCREASED [None]
  - MANIA [None]
  - NAUSEA [None]
  - SUICIDAL IDEATION [None]
  - VOMITING [None]
